FAERS Safety Report 7121159-1 (Version None)
Quarter: 2010Q4

REPORT INFORMATION
  Report Type: 
  Country: None (occurrence: None)
  Receive Date: 20101124
  Receipt Date: 20101110
  Transmission Date: 20110411
  Serious: Yes (Other)
  Sender: FDA-Public Use
  Company Number: PHHY2010US70904

PATIENT
  Sex: Female
  Weight: 53.515 kg

DRUGS (3)
  1. RECLAST [Suspect]
     Indication: OSTEOPOROSIS
     Dosage: UNK
     Dates: start: 20101007
  2. CITRACAL [Concomitant]
     Route: 048
  3. MULTI-VITAMINS [Concomitant]

REACTIONS (13)
  - ABDOMINAL PAIN [None]
  - ANAPHYLACTIC REACTION [None]
  - ANGIOEDEMA [None]
  - ASTHENIA [None]
  - BLOOD PRESSURE INCREASED [None]
  - CARDIAC FLUTTER [None]
  - CHEST DISCOMFORT [None]
  - DYSPNOEA [None]
  - FLUSHING [None]
  - HEADACHE [None]
  - LARYNGEAL OEDEMA [None]
  - PALPITATIONS [None]
  - PHARYNGEAL OEDEMA [None]
